FAERS Safety Report 6415299-X (Version None)
Quarter: 2009Q4

REPORT INFORMATION
  Report Type: 
  Country: None (occurrence: None)
  Receive Date: 20091027
  Receipt Date: 20091013
  Transmission Date: 20100525
  Serious: Yes (Hospitalization, Other)
  Sender: FDA-Public Use
  Company Number: PHHY2009DE40414

PATIENT
  Sex: Male

DRUGS (6)
  1. LEPONEX [Suspect]
     Dosage: 500 MG/DAY
     Route: 048
     Dates: start: 20030901
  2. LEPONEX [Suspect]
     Dosage: 800 MG/ DAY
     Route: 048
     Dates: start: 20040101, end: 20060301
  3. LEPONEX [Suspect]
     Dosage: 700 MG/ DAY
     Route: 048
     Dates: start: 20060401
  4. SOLIAN [Concomitant]
     Dosage: 800 MG/DAY
     Route: 048
     Dates: start: 20040101, end: 20060301
  5. SOLIAN [Concomitant]
     Dosage: 700 MG/ DAY
     Route: 048
     Dates: start: 20060401
  6. PANTOPRAZOLE SODIUM [Concomitant]

REACTIONS (4)
  - ABDOMINAL PAIN [None]
  - PANCREATIC DUCT OBSTRUCTION [None]
  - PANCREATITIS ACUTE [None]
  - PANCREATITIS CHRONIC [None]
